FAERS Safety Report 7966964-4 (Version None)
Quarter: 2011Q4

REPORT INFORMATION
  Report Type: 
  Country: None (occurrence: None)
  Receive Date: 20111207
  Receipt Date: 20111207
  Transmission Date: 20120403
  Serious: No
  Sender: FDA-Public Use
  Company Number: None

PATIENT
  Age: 45 Year
  Sex: Male

DRUGS (2)
  1. PEG-INTRON [Suspect]
     Dosage: 150MCG ONCE WEEKLY SQ
     Route: 058
  2. VICTRELIS [Suspect]
     Dosage: 800MG  BID PO
     Route: 048
     Dates: start: 20111110

REACTIONS (2)
  - PRODUCTIVE COUGH [None]
  - SPUTUM DISCOLOURED [None]
